FAERS Safety Report 9511981 (Version 1)
Quarter: 2013Q3

REPORT INFORMATION
  Report Type: Report from Study
  Country: DE (occurrence: DE)
  Receive Date: 20130910
  Receipt Date: 20130910
  Transmission Date: 20140515
  Serious: Yes (Hospitalization, Other)
  Sender: FDA-Public Use
  Company Number: DE-INCYTE CORPORATION-2013IN001984

PATIENT
  Sex: 0

DRUGS (6)
  1. CINC424B2301 [Suspect]
     Indication: POLYCYTHAEMIA VERA
     Dosage: 5 MG, BID
     Route: 048
     Dates: start: 20130122, end: 20130321
  2. CINC424B2301 [Suspect]
     Dosage: 10 MG, BID
     Route: 048
     Dates: start: 20130322, end: 20130416
  3. CINC424B2301 [Suspect]
     Dosage: 15 MG, BID
     Route: 048
     Dates: start: 20130417, end: 20130614
  4. CINC424B2301 [Suspect]
     Dosage: 20 MG, BID
     Route: 048
     Dates: start: 20130615, end: 20130806
  5. CINC424B2301 [Suspect]
     Dosage: 15 MG, BID
     Route: 048
     Dates: start: 20130807, end: 20130820
  6. TINZAPARIN [Concomitant]
     Dosage: UNK
     Dates: start: 20130317, end: 20130820

REACTIONS (1)
  - Retinal detachment [Unknown]
